FAERS Safety Report 8071530-9 (Version None)
Quarter: 2012Q1

REPORT INFORMATION
  Report Type: 
  Country: None (occurrence: None)
  Receive Date: 20120125
  Receipt Date: 20120120
  Transmission Date: 20120608
  Serious: No
  Sender: FDA-Public Use
  Company Number: US-BAYER-2012-007866

PATIENT
  Age: 13 Year
  Sex: Female

DRUGS (2)
  1. RID MOUSSE [Suspect]
     Dosage: 4 U, UNK
     Route: 061
     Dates: start: 20111222, end: 20120115
  2. NEXIUM [Concomitant]

REACTIONS (1)
  - LICE INFESTATION [None]
